FAERS Safety Report 8471963-2 (Version None)
Quarter: 2012Q2

REPORT INFORMATION
  Report Type: 
  Country: None (occurrence: None)
  Receive Date: 20120627
  Receipt Date: 20120618
  Transmission Date: 20120825
  Serious: Yes (Hospitalization)
  Sender: FDA-Public Use
  Company Number: US-BAYER-2012-061137

PATIENT
  Age: 37 Year
  Sex: Female
  Weight: 127 kg

DRUGS (9)
  1. YAZ [Suspect]
     Indication: PREMENSTRUAL SYNDROME
  2. MECLIZINE [Concomitant]
     Indication: DIZZINESS
  3. ZOVIRAX [Concomitant]
  4. VALACICLOVIR [Concomitant]
     Dosage: 500 MG, UNK
  5. DROSPIRENONE AND ETHINYL ESTRADIOL [Suspect]
  6. PROVENTIL [Concomitant]
     Dosage: UNK UNK, PRN
  7. SINGULAIR [Concomitant]
     Dosage: 10 MG, UNK
  8. HYDROCODONE BITARTRATE + ACETAMINOPHEN [Concomitant]
     Dosage: 7.5/500 MG
  9. LOTRISONE [Concomitant]
     Dosage: UNK

REACTIONS (3)
  - DEEP VEIN THROMBOSIS [None]
  - CEREBRAL INFARCTION [None]
  - PULMONARY EMBOLISM [None]
